FAERS Safety Report 23995946 (Version 1)
Quarter: 2024Q2

REPORT INFORMATION
  Report Type: Spontaneous
  Country: US (occurrence: None)
  Receive Date: 20240618
  Receipt Date: 20240618
  Transmission Date: 20240716
  Serious: Yes (Hospitalization, Disabling, Other)
  Sender: FDA-Public Use
  Company Number: None

PATIENT
  Age: 53 Year
  Sex: Female
  Weight: 47.25 kg

DRUGS (5)
  1. HERBALS\MUSHROOMS UNSPECIFIED [Suspect]
     Active Substance: HERBALS\MUSHROOMS UNSPECIFIED
     Indication: Substance use
     Dosage: FREQUENCY : AS NEEDED?
     Route: 048
  2. DEVICE\INSULIN NOS [Concomitant]
     Active Substance: DEVICE\INSULIN NOS
  3. ENBREL [Concomitant]
     Active Substance: BENZYL ALCOHOL\ETANERCEPT
  4. VITAMINS [Concomitant]
     Active Substance: VITAMINS
  5. ASHWAGHANDA [Concomitant]

REACTIONS (6)
  - Extra dose administered [None]
  - Syncope [None]
  - Seizure [None]
  - Palpitations [None]
  - Gait inability [None]
  - Dysarthria [None]

NARRATIVE: CASE EVENT DATE: 20231120
